FAERS Safety Report 6506958 (Version 2)
Quarter: 2013Q2

REPORT INFORMATION
  Report Type: Spontaneous
  Country: US (occurrence: US)
  Receive Date: 20071217
  Receipt Date: 20130507
  Transmission Date: 20140414
  Serious: Yes (Other)
  Sender: FDA-Public Use
  Company Number: US-ELI_LILLY_AND_COMPANY-US200712000259

PATIENT
  Age: 56 Year
  Sex: Female

DRUGS (2)
  1. EVISTA [Suspect]
     Indication: OSTEOPENIA
  2. BONIVA [Concomitant]
     Indication: OSTEOPENIA

REACTIONS (2)
  - Breast cancer [Recovered/Resolved]
  - Bone density decreased [Not Recovered/Not Resolved]
